FAERS Safety Report 17033702 (Version 2)
Quarter: 2019Q4

REPORT INFORMATION
  Report Type: Spontaneous
  Country: JP (occurrence: JP)
  Receive Date: 20191114
  Receipt Date: 20191204
  Transmission Date: 20200122
  Serious: Yes (Hospitalization)
  Sender: FDA-Public Use
  Company Number: JP-CELGENEUS-JPN-20191104481

PATIENT
  Age: 71 Year
  Sex: Male
  Weight: 56 kg

DRUGS (2)
  1. ABRAXANE [Suspect]
     Active Substance: PACLITAXEL
     Indication: METASTATIC GASTRIC CANCER
     Dosage: 130 MILLIGRAM
     Route: 041
     Dates: start: 20190819, end: 20190909
  2. CYRAMZA [Suspect]
     Active Substance: RAMUCIRUMAB
     Indication: METASTATIC GASTRIC CANCER
     Dosage: 450 MILLIGRAM
     Route: 041
     Dates: start: 20190819, end: 20190909

REACTIONS (2)
  - Peritonitis [Recovering/Resolving]
  - Gastric perforation [Recovering/Resolving]

NARRATIVE: CASE EVENT DATE: 20190925
